FAERS Safety Report 20729235 (Version 4)
Quarter: 2022Q3

REPORT INFORMATION
  Report Type: Spontaneous
  Country: US (occurrence: US)
  Receive Date: 20220420
  Receipt Date: 20220725
  Transmission Date: 20221027
  Serious: Yes (Hospitalization)
  Sender: FDA-Public Use
  Company Number: US-BIOCODEX2-2022000097

PATIENT

DRUGS (11)
  1. DIACOMIT [Suspect]
     Active Substance: STIRIPENTOL
     Indication: Epilepsy
     Dosage: 500 MG, TAKE 2 CAPSULES BY MOUTH IN THE MORNING AND 3 CAPSULES IN THE EVENING
     Route: 048
     Dates: start: 20200116
  2. DIACOMIT [Suspect]
     Active Substance: STIRIPENTOL
     Dosage: 2500MG, DAILY
  3. DIACOMIT [Suspect]
     Active Substance: STIRIPENTOL
     Dosage: 1 CAPSULE OF 500MG IN THE MORNING AND 2 CAPSULES OF 500MG AT NIGHT.
     Route: 065
  4. ONFI [Concomitant]
     Active Substance: CLOBAZAM
     Indication: Product used for unknown indication
     Route: 065
  5. EPIDIOLEX [Concomitant]
     Active Substance: CANNABIDIOL
     Indication: Product used for unknown indication
     Route: 065
  6. PHENOBARBITAL [Concomitant]
     Active Substance: PHENOBARBITAL
     Indication: Product used for unknown indication
     Route: 065
  7. CATAPRES [Concomitant]
     Active Substance: CLONIDINE HYDROCHLORIDE
     Indication: Product used for unknown indication
     Route: 065
  8. LUMINAL [PHENOBARBITAL] [Concomitant]
     Indication: Product used for unknown indication
     Route: 065
  9. KEFLEX [Concomitant]
     Active Substance: CEPHALEXIN
     Indication: Product used for unknown indication
     Route: 065
  10. KLONOPIN [Concomitant]
     Active Substance: CLONAZEPAM
     Indication: Product used for unknown indication
     Route: 065
  11. FINTEPLA [Concomitant]
     Active Substance: FENFLURAMINE
     Indication: Product used for unknown indication

REACTIONS (8)
  - Seizure [Unknown]
  - Illness [Unknown]
  - Dry skin [Unknown]
  - Dehydration [Unknown]
  - Behaviour disorder [Unknown]
  - Aggression [Unknown]
  - Vomiting [Recovered/Resolved]
  - Product use in unapproved indication [Unknown]
